FAERS Safety Report 6850233-X (Version None)
Quarter: 2010Q3

REPORT INFORMATION
  Report Type: 
  Country: None (occurrence: None)
  Receive Date: 20100716
  Receipt Date: 20071012
  Transmission Date: 20110219
  Serious: No
  Sender: FDA-Public Use
  Company Number: US-PFIZER INC-2007087070

PATIENT
  Sex: Male
  Weight: 95.5 kg

DRUGS (7)
  1. CHANTIX [Suspect]
     Indication: SMOKING CESSATION THERAPY
     Route: 048
     Dates: start: 20070901, end: 20070908
  2. FUROSEMIDE [Concomitant]
  3. ACETYLSALICYLIC ACID [Concomitant]
  4. PREVACID [Concomitant]
     Indication: GASTRIC DISORDER
  5. ALTACE [Concomitant]
  6. FLUVOXAMINE [Concomitant]
     Indication: COMPULSIONS
  7. RISPERDAL [Concomitant]
     Indication: COMPULSIONS

REACTIONS (2)
  - ABDOMINAL DISCOMFORT [None]
  - ABDOMINAL PAIN UPPER [None]
